FAERS Safety Report 13604044 (Version 2)
Quarter: 2017Q2

REPORT INFORMATION
  Report Type: Spontaneous
  Country: US (occurrence: US)
  Receive Date: 20170602
  Receipt Date: 20170602
  Transmission Date: 20170830
  Serious: No
  Sender: FDA-Public Use
  Company Number: US-BAUSCH-BL-2017-007723

PATIENT
  Age: 10 Year
  Sex: Female

DRUGS (2)
  1. ELIDEL [Suspect]
     Active Substance: PIMECROLIMUS
     Indication: DRY SKIN
     Dosage: TWICE DAILY
     Route: 061
     Dates: start: 20170321, end: 20170321
  2. ELIDEL [Suspect]
     Active Substance: PIMECROLIMUS
     Indication: PAPULE

REACTIONS (2)
  - Burning sensation [Recovering/Resolving]
  - Erythema [Recovering/Resolving]

NARRATIVE: CASE EVENT DATE: 20170321
